FAERS Safety Report 15955853 (Version 2)
Quarter: 2020Q3

REPORT INFORMATION
  Report Type: Spontaneous
  Country: US (occurrence: US)
  Receive Date: 20190213
  Receipt Date: 20200909
  Transmission Date: 20201102
  Serious: Yes (Other)
  Sender: FDA-Public Use
  Company Number: US-ALKEM LABORATORIES LIMITED-US-ALKEM-2018-04970

PATIENT
  Sex: Male

DRUGS (3)
  1. GABAPENTIN. [Suspect]
     Active Substance: GABAPENTIN
     Indication: HEADACHE
     Dosage: 300 MILLIGRAM, OD
     Route: 048
     Dates: start: 201611
  2. GABAPENTIN. [Suspect]
     Active Substance: GABAPENTIN
     Dosage: 300 MILLIGRAM, BID
     Route: 048
     Dates: start: 201611
  3. GABAPENTIN. [Suspect]
     Active Substance: GABAPENTIN
     Dosage: 300 MILLIGRAM, TID
     Route: 048
     Dates: start: 201611, end: 201612

REACTIONS (12)
  - Withdrawal syndrome [Unknown]
  - Ejaculation disorder [Recovered/Resolved]
  - Tremor [Unknown]
  - Product use in unapproved indication [Unknown]
  - Seizure [Recovered/Resolved]
  - Erectile dysfunction [Recovered/Resolved]
  - Insomnia [Not Recovered/Not Resolved]
  - Medication error [Unknown]
  - Wrong dose [Unknown]
  - Hypersensitivity [Recovered/Resolved]
  - Memory impairment [Not Recovered/Not Resolved]
  - Penis disorder [Recovered/Resolved]

NARRATIVE: CASE EVENT DATE: 201612
